FAERS Safety Report 14683599 (Version 3)
Quarter: 2018Q2

REPORT INFORMATION
  Report Type: Spontaneous
  Country: BR (occurrence: BR)
  Receive Date: 20180327
  Receipt Date: 20180419
  Transmission Date: 20180711
  Serious: Yes (Life-Threatening, Other)
  Sender: FDA-Public Use
  Company Number: PHHY2018BR052998

PATIENT
  Sex: Male
  Weight: 79 kg

DRUGS (4)
  1. ALPRAZOLAM. [Suspect]
     Active Substance: ALPRAZOLAM
     Indication: PRODUCT USED FOR UNKNOWN INDICATION
     Dosage: UNK
     Route: 065
  2. CLOXAZOLAM [Suspect]
     Active Substance: CLOXAZOLAM
     Indication: PRODUCT USED FOR UNKNOWN INDICATION
     Dosage: UNK
     Route: 065
  3. TOPIRAMATE. [Concomitant]
     Active Substance: TOPIRAMATE
     Indication: SEIZURE
     Dosage: 1 DF, QD
     Route: 048
     Dates: start: 2014
  4. OLCADIL [Suspect]
     Active Substance: CLOXAZOLAM
     Indication: GENERALISED ANXIETY DISORDER
     Dosage: 1 DF, QD
     Route: 048
     Dates: start: 2014, end: 201803

REACTIONS (20)
  - Feeling abnormal [Recovering/Resolving]
  - Dyspnoea [Recovering/Resolving]
  - Insomnia [Not Recovered/Not Resolved]
  - Depression [Not Recovered/Not Resolved]
  - Nausea [Not Recovered/Not Resolved]
  - Agitation [Not Recovered/Not Resolved]
  - Drug dependence [Not Recovered/Not Resolved]
  - Breath odour [Recovering/Resolving]
  - Mental fatigue [Not Recovered/Not Resolved]
  - Blood pressure abnormal [Recovering/Resolving]
  - Stress [Not Recovered/Not Resolved]
  - Nervousness [Not Recovered/Not Resolved]
  - Discomfort [Not Recovered/Not Resolved]
  - Drug effect decreased [Not Recovered/Not Resolved]
  - Salivary hypersecretion [Recovering/Resolving]
  - Panic reaction [Not Recovered/Not Resolved]
  - Mental impairment [Not Recovered/Not Resolved]
  - Autophobia [Recovering/Resolving]
  - Tremor [Not Recovered/Not Resolved]
  - Sleep disorder [Not Recovered/Not Resolved]
